FAERS Safety Report 5326232-6 (Version None)
Quarter: 2007Q2

REPORT INFORMATION
  Report Type: 
  Country: None (occurrence: None)
  Receive Date: 20070516
  Receipt Date: 20070515
  Transmission Date: 20071010
  Serious: Yes (Other)
  Sender: FDA-Public Use
  Company Number: US-GENENTECH-237090

PATIENT
  Sex: Male

DRUGS (1)
  1. XOLAIR [Suspect]
     Indication: ASTHMA
     Dosage: UNK, 2/MONTH
     Route: 058

REACTIONS (4)
  - AGITATION [None]
  - DEPRESSION [None]
  - INSOMNIA [None]
  - MYOCLONUS [None]
